FAERS Safety Report 9406254 (Version 1)
Quarter: 2013Q3

REPORT INFORMATION
  Report Type: Spontaneous
  Country: US (occurrence: US)
  Receive Date: 20130717
  Receipt Date: 20130717
  Transmission Date: 20140515
  Serious: No
  Sender: FDA-Public Use
  Company Number: US-BAUSCH-BL-2013-002370

PATIENT
  Age: 62 Year
  Sex: Female

DRUGS (2)
  1. BESIVANCE (BESIFLOXACIN OPHTHALMIC SUSPENSION) 0.6% [Suspect]
     Indication: BACTERIAL INFECTION
     Dosage: 1 DROP; DAILY; OPHTHALMIC
     Route: 047
     Dates: start: 20130422, end: 20130423
  2. LATANOPROST [Concomitant]
     Indication: GLAUCOMA
     Dosage: 1 DROP; AT BEDTIME; OPHTHALMIC
     Route: 047
     Dates: start: 2003

REACTIONS (2)
  - Vision blurred [Recovered/Resolved]
  - Halo vision [Recovered/Resolved]
